FAERS Safety Report 20057999 (Version 1)
Quarter: 2021Q4

REPORT INFORMATION
  Report Type: Spontaneous
  Country: TW (occurrence: TW)
  Receive Date: 20211111
  Receipt Date: 20211111
  Transmission Date: 20220303
  Serious: Yes (Other)
  Sender: FDA-Public Use
  Company Number: TW-MLMSERVICE-20211006-3151903-1

PATIENT
  Age: 55 Year
  Sex: Female

DRUGS (3)
  1. ESCITALOPRAM [Suspect]
     Active Substance: ESCITALOPRAM OXALATE
     Indication: Schizoaffective disorder
     Dosage: 10 MILLIGRAM, QD
     Route: 065
  2. AGOMELATINE [Suspect]
     Active Substance: AGOMELATINE
     Indication: Schizoaffective disorder
     Dosage: 25 MILLIGRAM, QD
     Route: 065
  3. PALIPERIDONE [Concomitant]
     Active Substance: PALIPERIDONE
     Indication: Schizoaffective disorder
     Dosage: 9 MILLIGRAM, QD
     Route: 065

REACTIONS (8)
  - Arrhythmia [Recovered/Resolved]
  - Gastrointestinal disorder [Unknown]
  - Supraventricular tachycardia [Recovered/Resolved]
  - Dizziness [Recovered/Resolved]
  - Chest discomfort [Recovered/Resolved]
  - Heart rate increased [Recovered/Resolved]
  - Blood pressure decreased [Recovered/Resolved]
  - Palpitations [Recovered/Resolved]
